FAERS Safety Report 13681564 (Version 1)
Quarter: 2017Q2

REPORT INFORMATION
  Report Type: Spontaneous
  Country: US (occurrence: US)
  Receive Date: 20170622
  Receipt Date: 20170622
  Transmission Date: 20170830
  Serious: Yes (Disabling)
  Sender: FDA-Public Use
  Company Number: None

PATIENT
  Age: 53 Year
  Sex: Female
  Weight: 134.5 kg

DRUGS (12)
  1. CLONAZAPAM 1MG [Suspect]
     Active Substance: CLONAZEPAM
     Indication: ANXIETY
     Route: 048
     Dates: start: 19990101, end: 20160101
  2. BLOOD PRESSURE MEDS [Concomitant]
  3. VITAMIN D [Concomitant]
     Active Substance: CHOLECALCIFEROL
  4. MAGNESIUM WITH CALCIUM AND ZINC [Concomitant]
  5. CLONAZAPAM 1MG [Suspect]
     Active Substance: CLONAZEPAM
     Indication: RESTLESS LEGS SYNDROME
     Route: 048
     Dates: start: 19990101, end: 20160101
  6. WATER PILL [Concomitant]
     Active Substance: UNSPECIFIED INGREDIENT
  7. LOSARTAN. [Concomitant]
     Active Substance: LOSARTAN
  8. PREVACID [Concomitant]
     Active Substance: LANSOPRAZOLE
  9. CLONAZAPAM 1MG [Suspect]
     Active Substance: CLONAZEPAM
     Indication: PAIN
     Route: 048
     Dates: start: 19990101, end: 20160101
  10. CLONAZAPAM 1MG [Suspect]
     Active Substance: CLONAZEPAM
     Indication: INSOMNIA
     Route: 048
     Dates: start: 19990101, end: 20160101
  11. VITAMIN D [Concomitant]
     Active Substance: CHOLECALCIFEROL
  12. INHALERS FOR COPD AND ASTHMA [Concomitant]

REACTIONS (13)
  - Fatigue [None]
  - Pain [None]
  - Blood pressure increased [None]
  - Fibromyalgia [None]
  - Drug withdrawal syndrome [None]
  - Respiratory disorder [None]
  - Vision blurred [None]
  - Muscle spasms [None]
  - Drug intolerance [None]
  - Urinary tract infection [None]
  - Incontinence [None]
  - Palpitations [None]
  - Thyroid disorder [None]

NARRATIVE: CASE EVENT DATE: 20070101
